FAERS Safety Report 8087301-3 (Version None)
Quarter: 2012Q1

REPORT INFORMATION
  Report Type: 
  Country: None (occurrence: None)
  Receive Date: 20120128
  Receipt Date: 20110520
  Transmission Date: 20120608
  Serious: Yes (Hospitalization, Other)
  Sender: FDA-Public Use
  Company Number: US-ABBOTT-11P-163-0726017-00

PATIENT
  Sex: Female

DRUGS (3)
  1. HUMIRA [Suspect]
     Route: 058
     Dates: start: 20100101
  2. HUMIRA [Suspect]
     Route: 058
     Dates: start: 20080101, end: 20090101
  3. HUMIRA [Suspect]
     Indication: CROHN'S DISEASE
     Route: 058
     Dates: start: 20090101, end: 20100101

REACTIONS (7)
  - CROHN'S DISEASE [None]
  - PAIN IN EXTREMITY [None]
  - TENDON RUPTURE [None]
  - CATARACT [None]
  - VISION BLURRED [None]
  - CHEST PAIN [None]
  - POST PROCEDURAL INFECTION [None]
